FAERS Safety Report 8949100 (Version 1)
Quarter: 2012Q4

REPORT INFORMATION
  Report Type: 
  Country: US (occurrence: US)
  Receive Date: 20121206
  Receipt Date: 20121206
  Transmission Date: 20130627
  Serious: No
  Sender: FDA-Public Use
  Company Number: US-009507513-1212USA001031

PATIENT
  Sex: Female

DRUGS (3)
  1. PEGINTRON [Suspect]
     Indication: HEPATITIS C
     Dosage: 120 Microgram, qw
     Dates: start: 201208
  2. VICTRELIS [Suspect]
  3. RIBASPHERE [Suspect]

REACTIONS (2)
  - Red blood cell count decreased [Not Recovered/Not Resolved]
  - Product quality issue [Unknown]
